FAERS Safety Report 9777925 (Version 2)
Quarter: 2014Q1

REPORT INFORMATION
  Report Type: Spontaneous
  Country: US (occurrence: US)
  Receive Date: 20131223
  Receipt Date: 20140116
  Transmission Date: 20141002
  Serious: No
  Sender: FDA-Public Use
  Company Number: US-B.I. PHARMACEUTICALS,INC./RIDGEFIELD-2013-BI-41371BP

PATIENT
  Age: 43 Year
  Sex: Female
  Weight: 97.52 kg

DRUGS (3)
  1. COMBIVENT [Suspect]
     Indication: ASTHMA
     Dosage: STRENGTH: 20 MCG / 100 MCG; DAILY DOSE: 80 MCG/400 MCG
     Route: 055
     Dates: start: 201310
  2. NAPROXEN [Concomitant]
     Indication: ARTHRALGIA
     Dosage: DOSE: 500MG
     Dates: start: 20130924
  3. PERCOCET [Concomitant]
     Indication: ARTHRALGIA
     Dosage: DOSE: 5/325 MG
     Dates: start: 20130725

REACTIONS (4)
  - Choking [Not Recovered/Not Resolved]
  - Cough [Not Recovered/Not Resolved]
  - Drug ineffective [Not Recovered/Not Resolved]
  - Off label use [Unknown]
